FAERS Safety Report 11363517 (Version 1)
Quarter: 2015Q3

REPORT INFORMATION
  Report Type: Spontaneous
  Country: CN (occurrence: CN)
  Receive Date: 20150811
  Receipt Date: 20150811
  Transmission Date: 20151125
  Serious: Yes (Death)
  Sender: FDA-Public Use
  Company Number: CN-ASTRAZENECA-2015SE76212

PATIENT
  Age: 53 Year
  Sex: Male

DRUGS (5)
  1. CRESTOR [Suspect]
     Active Substance: ROSUVASTATIN CALCIUM
     Route: 048
  2. TRIMETAZIDINE DIHYDROCHLORIDE [Concomitant]
     Active Substance: TRIMETAZIDINE DIHYDROCHLORIDE
  3. COENZYME Q10 [Concomitant]
     Active Substance: UBIDECARENONE
  4. BRILINTA [Suspect]
     Active Substance: TICAGRELOR
     Route: 048
  5. BETALOC ZOK [Suspect]
     Active Substance: METOPROLOL SUCCINATE
     Route: 048

REACTIONS (1)
  - Myocardial infarction [Fatal]
